FAERS Safety Report 20069265 (Version 1)
Quarter: 2021Q4

REPORT INFORMATION
  Report Type: Spontaneous
  Country: US (occurrence: None)
  Receive Date: 20211112
  Receipt Date: 20211112
  Transmission Date: 20220303
  Serious: Yes (Hospitalization)
  Sender: FDA-Public Use
  Company Number: None

PATIENT
  Age: 88 Year
  Sex: Male
  Weight: 97 kg

DRUGS (1)
  1. APIXABAN [Suspect]
     Active Substance: APIXABAN
     Dates: start: 20190403, end: 20210902

REACTIONS (4)
  - Epistaxis [None]
  - Haematuria [None]
  - Haemorrhage [None]
  - Anaemia [None]

NARRATIVE: CASE EVENT DATE: 20210820
